FAERS Safety Report 18769030 (Version 1)
Quarter: 2021Q1

REPORT INFORMATION
  Report Type: Spontaneous
  Country: US (occurrence: US)
  Receive Date: 20210121
  Receipt Date: 20210121
  Transmission Date: 20210419
  Serious: No
  Sender: FDA-Public Use
  Company Number: US-PFIZER INC-2020040459

PATIENT
  Age: 63 Year
  Sex: Female
  Weight: 91 kg

DRUGS (1)
  1. EFFEXOR XR [Suspect]
     Active Substance: VENLAFAXINE HYDROCHLORIDE
     Indication: PAIN
     Dosage: 37.5 MG, 1X/DAY
     Route: 048
     Dates: end: 20200127

REACTIONS (5)
  - Fibromyalgia [Unknown]
  - Seasonal affective disorder [Unknown]
  - Memory impairment [Unknown]
  - Musculoskeletal discomfort [Unknown]
  - Off label use [Unknown]
